FAERS Safety Report 4648609-4 (Version None)
Quarter: 2005Q2

REPORT INFORMATION
  Report Type: 
  Country: None (occurrence: None)
  Receive Date: 20050429
  Receipt Date: 20050216
  Transmission Date: 20051028
  Serious: Yes (Disabling, Other)
  Sender: FDA-Public Use
  Company Number: 200511316US

PATIENT
  Age: 50 Year
  Sex: Female

DRUGS (2)
  1. KETEK [Suspect]
     Indication: SINUSITIS
     Route: 048
     Dates: start: 20050201, end: 20050210
  2. SUDAFED 12 HOUR [Concomitant]
     Dosage: DOSE: NOT PROVIDED

REACTIONS (10)
  - EYE INFECTION FUNGAL [None]
  - EYE PRURITUS [None]
  - EYE SWELLING [None]
  - FACIAL PAIN [None]
  - MACULAR OEDEMA [None]
  - METAMORPHOPSIA [None]
  - MYDRIASIS [None]
  - RETINAL HAEMORRHAGE [None]
  - RETINAL VEIN OCCLUSION [None]
  - VISION BLURRED [None]
